FAERS Safety Report 7083994-8 (Version None)
Quarter: 2010Q4

REPORT INFORMATION
  Report Type: 
  Country: None (occurrence: None)
  Receive Date: 20101025
  Receipt Date: 20101008
  Transmission Date: 20110411
  Serious: Yes (Life-Threatening, Hospitalization)
  Sender: FDA-Public Use
  Company Number: CTI_01236_2010

PATIENT
  Sex: Female

DRUGS (4)
  1. MEIACT (MEIACT MS (CEFDITOREN PIVOXIL) (NOT SPECIFIED) [Suspect]
     Indication: NASOPHARYNGITIS
     Dosage: (300 MG ORAL)
     Route: 048
     Dates: start: 20100715, end: 20100717
  2. MEIACT (MEIACT MS (CEFDITOREN PIVOXIL) (NOT SPECIFIED) [Suspect]
     Indication: RESPIRATORY TRACT INFECTION
     Dosage: (300 MG ORAL)
     Route: 048
     Dates: start: 20100715, end: 20100717
  3. NON-PYRAZOLONE COLD DRUG [Concomitant]
  4. TRANEXAMIC ACID [Concomitant]

REACTIONS (3)
  - MALAISE [None]
  - PANCYTOPENIA [None]
  - PYREXIA [None]
